FAERS Safety Report 13345594 (Version 2)
Quarter: 2017Q2

REPORT INFORMATION
  Report Type: Report from Study
  Country: US (occurrence: AR)
  Receive Date: 20170317
  Receipt Date: 20170417
  Transmission Date: 20170830
  Serious: Yes (Other)
  Sender: FDA-Public Use
  Company Number: US-SUNOVION-2017SUN001167

PATIENT
  Sex: Female

DRUGS (5)
  1. ASPIRIN. [Suspect]
     Active Substance: ASPIRIN
     Indication: PRODUCT USED FOR UNKNOWN INDICATION
     Dosage: 500 MG, UNK
  2. ASPIRIN. [Suspect]
     Active Substance: ASPIRIN
     Dosage: 100 MG, UNK
  3. INDACATEROL [Suspect]
     Active Substance: INDACATEROL
     Indication: DYSPNOEA
     Dosage: 300 DF, QD
     Route: 065
  4. INDACATEROL [Suspect]
     Active Substance: INDACATEROL
     Indication: ASTHMA
  5. AMLODIPINE [Suspect]
     Active Substance: AMLODIPINE BESYLATE
     Indication: PRODUCT USED FOR UNKNOWN INDICATION
     Dosage: UNK

REACTIONS (13)
  - Contusion [Unknown]
  - Medication error [Unknown]
  - Asthma [Unknown]
  - Agitation [Unknown]
  - Cataract [Unknown]
  - Aortic bruit [Recovering/Resolving]
  - Bronchospasm [Recovered/Resolved]
  - Product use issue [Unknown]
  - Blood pressure abnormal [Recovering/Resolving]
  - Arterial occlusive disease [Recovering/Resolving]
  - Carotid artery occlusion [Unknown]
  - Blood cholesterol increased [Recovered/Resolved]
  - Tachycardia [Unknown]
